FAERS Safety Report 4809463-0 (Version None)
Quarter: 2005Q4

REPORT INFORMATION
  Report Type: 
  Country: None (occurrence: None)
  Receive Date: 20051021
  Receipt Date: 20051012
  Transmission Date: 20060501
  Serious: Yes (Death, Other)
  Sender: FDA-Public Use
  Company Number: 163-20785-04120652

PATIENT
  Age: 59 Year
  Sex: Male
  Weight: 115.4404 kg

DRUGS (4)
  1. THALOMID [Suspect]
     Indication: MALIGNANT MELANOMA
     Dosage: 200 MG, DAILY, DAYS 1-14 OF EACH 28 DAY CYCLE, ORAL
     Route: 048
     Dates: start: 20040327, end: 20041229
  2. THALOMID [Suspect]
  3. GMCSF (GRANULOCYTE MACROPHAGE COLONY STIM FACTOR) [Suspect]
     Indication: MALIGNANT MELANOMA
     Dosage: SEE IMAGE
     Route: 058
     Dates: start: 20040327, end: 20041224
  4. CRESTOR [Concomitant]

REACTIONS (10)
  - CONSTIPATION [None]
  - COUGH [None]
  - DEEP VEIN THROMBOSIS [None]
  - DRUG INTERACTION [None]
  - HYPERCOAGULATION [None]
  - INFLUENZA [None]
  - MYOCARDIAL INFARCTION [None]
  - PULMONARY EMBOLISM [None]
  - RESPIRATORY DISORDER [None]
  - SUDDEN DEATH [None]
